FAERS Safety Report 21562238 (Version 1)
Quarter: 2022Q4

REPORT INFORMATION
  Report Type: Spontaneous
  Country: US (occurrence: None)
  Receive Date: 20221105
  Receipt Date: 20221105
  Transmission Date: 20230113
  Serious: Yes (Hospitalization)
  Sender: FDA-Public Use
  Company Number: None

PATIENT
  Age: 39 Year
  Sex: Female
  Weight: 80.2 kg

DRUGS (3)
  1. METHOTREXATE [Suspect]
     Active Substance: METHOTREXATE
     Dates: end: 20220927
  2. ONCASPAR [Suspect]
     Active Substance: PEGASPARGASE
     Dates: end: 20220922
  3. RITUXIMAB [Suspect]
     Active Substance: RITUXIMAB
     Dates: end: 20220905

REACTIONS (20)
  - Acute respiratory failure [None]
  - Septic shock [None]
  - Purpura fulminans [None]
  - Anaemia [None]
  - Thrombocytopenia [None]
  - Acute kidney injury [None]
  - Dialysis [None]
  - Gastrointestinal haemorrhage [None]
  - Escherichia test positive [None]
  - Abdominal pain [None]
  - Pyrexia [None]
  - Tachycardia [None]
  - Lactic acidosis [None]
  - Pleural effusion [None]
  - Angiopathy [None]
  - Ascites [None]
  - Hypernatraemia [None]
  - Hypervolaemia [None]
  - Dysphonia [None]
  - Bacteraemia [None]

NARRATIVE: CASE EVENT DATE: 20221004
